FAERS Safety Report 8952857 (Version 1)
Quarter: 2012Q4

REPORT INFORMATION
  Report Type: 
  Country: CN (occurrence: CN)
  Receive Date: 20121203
  Receipt Date: 20121203
  Transmission Date: 20130627
  Serious: Yes (Other)
  Sender: FDA-Public Use
  Company Number: PHHY2012CN108915

PATIENT
  Age: 40 Year
  Sex: Female
  Weight: 48 kg

DRUGS (1)
  1. TEGRETOL [Suspect]
     Indication: NEURITIS
     Dosage: 1 DF, BID
     Route: 048
     Dates: start: 20110219, end: 20110222

REACTIONS (8)
  - Ocular hyperaemia [Recovered/Resolved]
  - Vulvovaginal erythema [Recovered/Resolved]
  - Erythema [Recovered/Resolved]
  - Stomatitis [Recovered/Resolved]
  - Gingival erythema [Recovered/Resolved]
  - Scar [Recovered/Resolved]
  - Pain [Recovered/Resolved]
  - Thrombocytosis [Recovered/Resolved]
